FAERS Safety Report 7806145-8 (Version None)
Quarter: 2011Q4

REPORT INFORMATION
  Report Type: 
  Country: None (occurrence: None)
  Receive Date: 20111011
  Receipt Date: 20111006
  Transmission Date: 20120403
  Serious: No
  Sender: FDA-Public Use
  Company Number: US-PFIZER INC-2011239315

PATIENT

DRUGS (3)
  1. LAMICTAL [Concomitant]
     Indication: CONVULSION
     Dosage: UNK
  2. EFFEXOR XR [Suspect]
     Indication: DEPRESSION
     Dosage: 75 MG, 2X/DAY
     Route: 048
     Dates: start: 20080101
  3. BUSPAR [Concomitant]
     Indication: ANXIETY
     Dosage: UNK

REACTIONS (1)
  - DRUG INEFFECTIVE [None]
